FAERS Safety Report 10096639 (Version 1)
Quarter: 2014Q2

REPORT INFORMATION
  Report Type: Spontaneous
  Country: RO (occurrence: RO)
  Receive Date: 20140422
  Receipt Date: 20140422
  Transmission Date: 20141212
  Serious: Yes (Life-Threatening, Hospitalization)
  Sender: FDA-Public Use
  Company Number: RO-ACTAVIS-2014-07814

PATIENT
  Age: 43 Year
  Sex: Female

DRUGS (5)
  1. SINDAXEL [Suspect]
     Indication: CERVIX CARCINOMA STAGE IV
     Dosage: 180 MG/ML
     Route: 017
     Dates: start: 20140406, end: 20140406
  2. HYDROCORTISONE HEMISUCCINATE [Concomitant]
     Indication: PRODUCT USED FOR UNKNOWN INDICATION
     Dosage: 200 MG, UNKNOWN
     Route: 017
  3. QUAMATEL [Concomitant]
     Indication: PRODUCT USED FOR UNKNOWN INDICATION
     Dosage: 20 MG, UNKNOWN
     Route: 017
  4. KETOTIFEN                          /00495202/ [Concomitant]
     Indication: PRODUCT USED FOR UNKNOWN INDICATION
     Dosage: 1 TABLET UNK
  5. ALGOCALMIN [Concomitant]
     Indication: PRODUCT USED FOR UNKNOWN INDICATION
     Dosage: 1/2 BOTTLE, UNKNOWN
     Route: 017

REACTIONS (9)
  - Resuscitation [Recovered/Resolved]
  - Acute respiratory failure [Recovered/Resolved]
  - Cardiac failure [Recovered/Resolved]
  - Pulse absent [Recovered/Resolved]
  - Hyperhidrosis [Recovered/Resolved]
  - Chest discomfort [Recovered/Resolved]
  - Cyanosis [Recovered/Resolved]
  - Hypotension [Recovered/Resolved]
  - Aphasia [Recovered/Resolved]
